FAERS Safety Report 19122410 (Version 1)
Quarter: 2021Q2

REPORT INFORMATION
  Report Type: Spontaneous
  Country: US (occurrence: US)
  Receive Date: 20210412
  Receipt Date: 20210412
  Transmission Date: 20210717
  Serious: No
  Sender: FDA-Public Use
  Company Number: US-ALLERGAN-2108947US

PATIENT
  Sex: Female

DRUGS (2)
  1. UBRELVY [Suspect]
     Active Substance: UBROGEPANT
     Indication: MIGRAINE
     Dosage: UNK
     Dates: start: 20210225, end: 20210225
  2. UBRELVY [Suspect]
     Active Substance: UBROGEPANT
     Dosage: UNK
     Dates: start: 20210226, end: 20210226

REACTIONS (2)
  - Migraine [Unknown]
  - Drug ineffective [Unknown]
